FAERS Safety Report 5820436-1 (Version None)
Quarter: 2008Q3

REPORT INFORMATION
  Report Type: 
  Country: None (occurrence: None)
  Receive Date: 20080724
  Receipt Date: 20070920
  Transmission Date: 20090109
  Serious: No
  Sender: FDA-Public Use
  Company Number: A0666772A

PATIENT
  Age: 62 Year
  Sex: Male

DRUGS (4)
  1. AVANDIA [Suspect]
     Dosage: 8MG PER DAY
     Route: 048
     Dates: start: 20060101, end: 20070601
  2. LIPITOR [Concomitant]
  3. METFORMIN [Concomitant]
  4. DIAVAN [Concomitant]

REACTIONS (1)
  - FLUID RETENTION [None]
